FAERS Safety Report 5175587-4 (Version None)
Quarter: 2006Q4

REPORT INFORMATION
  Report Type: 
  Country: None (occurrence: None)
  Receive Date: 20061215
  Receipt Date: 20061130
  Transmission Date: 20070319
  Serious: Yes (Hospitalization, Disabling)
  Sender: FDA-Public Use
  Company Number: GBWYE708930NOV06

PATIENT
  Age: 31 Year
  Sex: Female

DRUGS (4)
  1. ENBREL [Suspect]
     Indication: DRUG USE FOR UNKNOWN INDICATION
     Route: 058
     Dates: start: 20050501
  2. FOLIC ACID [Concomitant]
     Dosage: 5 MG, FREQUENCY UNSPECIFIED
     Route: 048
     Dates: start: 20010401
  3. METHOTREXATE [Concomitant]
     Route: 048
     Dates: start: 20010401
  4. CELECOXIB [Concomitant]
     Route: 048
     Dates: start: 20020201

REACTIONS (1)
  - PSYCHOTIC DISORDER [None]
